FAERS Safety Report 5464768-8 (Version None)
Quarter: 2007Q3

REPORT INFORMATION
  Report Type: 
  Country: None (occurrence: None)
  Receive Date: 20070820
  Receipt Date: 20070702
  Transmission Date: 20080115
  Serious: No
  Sender: FDA-Public Use
  Company Number: TPA2007A01486

PATIENT
  Age: 46 Year
  Sex: Female
  Weight: 68.0396 kg

DRUGS (4)
  1. ROZEREM [Suspect]
     Dosage: PER ORAL
     Route: 048
  2. VYTORIN [Concomitant]
  3. ALLEGRA [Concomitant]
  4. YASMIN [Concomitant]

REACTIONS (1)
  - DIZZINESS [None]
